FAERS Safety Report 4786750-6 (Version None)
Quarter: 2005Q4

REPORT INFORMATION
  Report Type: 
  Country: None (occurrence: None)
  Receive Date: 20051003
  Receipt Date: 20051003
  Transmission Date: 20060501
  Serious: No
  Sender: FDA-Public Use
  Company Number: None

PATIENT
  Age: 71 Year
  Sex: Female
  Weight: 72.1219 kg

DRUGS (1)
  1. WARFARIN [Suspect]
     Indication: HEART VALVE REPLACEMENT
     Dosage: 4 MG VARIES PO
     Route: 048

REACTIONS (3)
  - COAGULOPATHY [None]
  - CONJUNCTIVAL HAEMORRHAGE [None]
  - HAEMORRHAGE SUBCUTANEOUS [None]
